FAERS Safety Report 21908158 (Version 2)
Quarter: 2023Q1

REPORT INFORMATION
  Report Type: Spontaneous
  Country: US (occurrence: US)
  Receive Date: 20230125
  Receipt Date: 20230221
  Transmission Date: 20230417
  Serious: No
  Sender: FDA-Public Use
  Company Number: US-PFIZER INC-202300026729

PATIENT
  Age: 45 Year
  Sex: Male
  Weight: 117.93 kg

DRUGS (2)
  1. GENOTROPIN [Suspect]
     Active Substance: SOMATROPIN
     Dosage: 0.3 MG, 1X/DAY
     Dates: start: 20221228, end: 20230112
  2. TESTOSTERONE [Concomitant]
     Active Substance: TESTOSTERONE
     Dosage: UNK

REACTIONS (3)
  - Device use issue [Unknown]
  - Device failure [Unknown]
  - Drug dose omission by device [Unknown]

NARRATIVE: CASE EVENT DATE: 20230113
